FAERS Safety Report 8989789 (Version 2)
Quarter: 2013Q1

REPORT INFORMATION
  Report Type: Spontaneous
  Country: FR (occurrence: FR)
  Receive Date: 20121228
  Receipt Date: 20130123
  Transmission Date: 20140127
  Serious: Yes (Hospitalization, Other)
  Sender: FDA-Public Use
  Company Number: FR-PFIZER INC-2012330948

PATIENT
  Age: 64 Year
  Sex: Male

DRUGS (8)
  1. TAHOR [Suspect]
     Dosage: 1 DF, DAILY
     Route: 048
     Dates: end: 201204
  2. ZOLOFT [Suspect]
     Dosage: 50 MG, DAILY
     Route: 048
     Dates: start: 20020318, end: 201204
  3. VASTAREL [Suspect]
     Dosage: 70 MG, DAILY
     Route: 048
     Dates: start: 20011201, end: 201203
  4. PREVISCAN [Concomitant]
     Dosage: UNK
  5. ALPRAZOLAM [Concomitant]
     Dosage: UNK
  6. BETAHISTINE DIHYDROCHLORIDE [Concomitant]
     Dosage: UNK
  7. TANAKAN [Concomitant]
     Dosage: UNK
  8. XYZAL [Concomitant]
     Dosage: 5 MG, UNK

REACTIONS (3)
  - Restless legs syndrome [Recovering/Resolving]
  - Muscle spasms [Recovering/Resolving]
  - Limb injury [Unknown]
